FAERS Safety Report 5163281-5 (Version None)
Quarter: 2006Q4

REPORT INFORMATION
  Report Type: 
  Country: None (occurrence: None)
  Receive Date: 20061204
  Receipt Date: 20061123
  Transmission Date: 20070319
  Serious: Yes (Other)
  Sender: FDA-Public Use
  Company Number: FI-BRACCO-BRO-010949

PATIENT
  Age: 66 Year
  Sex: Female

DRUGS (4)
  1. IOPAMIDOL [Suspect]
     Route: 050
  2. METHOTREXATE [Suspect]
     Indication: DRUG USE FOR UNKNOWN INDICATION
     Route: 050
  3. METHOCHLORPROPAMIDE [Concomitant]
     Route: 050
  4. LORAZEPAM [Concomitant]
     Route: 050

REACTIONS (1)
  - RENAL FAILURE [None]
